FAERS Safety Report 21090554 (Version 1)
Quarter: 2022Q3

REPORT INFORMATION
  Report Type: Spontaneous
  Country: BR (occurrence: BR)
  Receive Date: 20220715
  Receipt Date: 20220715
  Transmission Date: 20221027
  Serious: Yes (Other)
  Sender: FDA-Public Use
  Company Number: BR-STRIDES ARCOLAB LIMITED-2022SP008922

PATIENT
  Age: 36 Year
  Sex: Female

DRUGS (3)
  1. CABERGOLINE [Suspect]
     Active Substance: CABERGOLINE
     Indication: Hyperprolactinaemia
     Dosage: 0.5 MILLIGRAM, PER WEEK, FORMULATION: PILLS
     Route: 065
     Dates: start: 201104
  2. CABERGOLINE [Suspect]
     Active Substance: CABERGOLINE
     Dosage: 1.25 MILLIGRAM, WEEKLY, ADJUSTED TO TWO AND A HALF PILLS
     Route: 065
     Dates: start: 2019
  3. CABERGOLINE [Suspect]
     Active Substance: CABERGOLINE
     Dosage: UNK, DOSE REDUCED
     Route: 065

REACTIONS (17)
  - Binge eating [Unknown]
  - Compulsive shopping [Unknown]
  - Gastrooesophageal reflux disease [Unknown]
  - Condition aggravated [Unknown]
  - Impulse-control disorder [Unknown]
  - Depression [Unknown]
  - Hypersexuality [Unknown]
  - Headache [Unknown]
  - Nausea [Unknown]
  - Constipation [Unknown]
  - Vomiting [Unknown]
  - Vertigo [Unknown]
  - Alopecia [Unknown]
  - Asthenia [Unknown]
  - Oedema [Unknown]
  - Dizziness [Unknown]
  - Weight increased [Unknown]

NARRATIVE: CASE EVENT DATE: 20110101
